FAERS Safety Report 10052717 (Version 1)
Quarter: 2014Q1

REPORT INFORMATION
  Report Type: Spontaneous
  Country: GB (occurrence: None)
  Receive Date: 20140331
  Receipt Date: 20140331
  Transmission Date: 20141002
  Serious: Yes (Hospitalization)
  Sender: FDA-Public Use
  Company Number: 2259537

PATIENT
  Age: 52 Year
  Sex: Male

DRUGS (8)
  1. CALCIUM FOLINATE [Suspect]
     Indication: PANCREATIC CARCINOMA
  2. IRINOTECAN HYDROCHLORIDE [Suspect]
     Indication: PANCREATIC CARCINOMA
  3. OXALIPLATIN [Suspect]
     Indication: PANCREATIC CARCINOMA
  4. FLUOROURACIL [Suspect]
     Indication: PANCREATIC CARCINOMA
  5. GLICLAZIDE [Concomitant]
  6. METFORMIN [Concomitant]
  7. PERINDOPRIL [Concomitant]
  8. TRAMADOL [Concomitant]

REACTIONS (1)
  - Pneumocystis jirovecii pneumonia [None]
